FAERS Safety Report 9795920 (Version 3)
Quarter: 2014Q1

REPORT INFORMATION
  Report Type: Report from Study
  Country: US (occurrence: US)
  Receive Date: 20140103
  Receipt Date: 20140214
  Transmission Date: 20141002
  Serious: Yes (Hospitalization)
  Sender: FDA-Public Use
  Company Number: US-PFIZER INC-2013373912

PATIENT
  Age: 55 Year
  Sex: Female

DRUGS (7)
  1. OXALIPLATIN [Suspect]
     Indication: COLORECTAL CANCER METASTATIC
     Dosage: 85 MG, 1 IN 2 WEEKS
     Route: 042
     Dates: start: 20130516
  2. OXALIPLATIN [Suspect]
     Dosage: 65 MG, 1 IN 2 WEEKS
     Route: 042
     Dates: start: 20130606
  3. IRINOTECAN HCL [Suspect]
     Indication: COLORECTAL CANCER METASTATIC
     Dosage: 165 MG, 1 IN 2 WEEKS
     Route: 042
     Dates: start: 20130516, end: 20130516
  4. IRINOTECAN HCL [Suspect]
     Dosage: 120 MG,1 IN 2 WEEKS
     Route: 042
     Dates: start: 20130606
  5. FLUOROURACIL [Suspect]
     Indication: COLORECTAL CANCER METASTATIC
     Dosage: 1600 MG, 1 IN 2 WEEKS
     Route: 042
     Dates: start: 20130516
  6. BEVACIZUMAB [Suspect]
     Indication: COLORECTAL CANCER METASTATIC
     Dosage: 425 MG, 1 IN 2 WEEKS
     Route: 042
     Dates: start: 20130515
  7. FOLINIC ACID [Suspect]
     Indication: COLORECTAL CANCER METASTATIC
     Dosage: 200 MG, 1 IN 2 WEEKS
     Route: 042
     Dates: start: 20130516

REACTIONS (2)
  - Pyrexia [Recovered/Resolved]
  - Diarrhoea [Recovered/Resolved]
